FAERS Safety Report 18877324 (Version 1)
Quarter: 2021Q1

REPORT INFORMATION
  Report Type: Report from Study
  Country: US (occurrence: US)
  Receive Date: 20210211
  Receipt Date: 20210211
  Transmission Date: 20210420
  Serious: Yes (Other)
  Sender: FDA-Public Use
  Company Number: US-BRISTOL-MYERS SQUIBB COMPANY-BMS-2021-012509

PATIENT
  Sex: Female

DRUGS (1)
  1. APIXABAN [Suspect]
     Active Substance: APIXABAN
     Indication: CEREBROVASCULAR ACCIDENT PROPHYLAXIS
     Dosage: UNK
     Route: 065

REACTIONS (5)
  - Intestinal haemorrhage [Recovered/Resolved]
  - Mouth haemorrhage [Recovered/Resolved]
  - Palpitations [Recovered/Resolved]
  - Epistaxis [Recovered/Resolved]
  - Heart rate irregular [Unknown]
